FAERS Safety Report 10579903 (Version 1)
Quarter: 2014Q4

REPORT INFORMATION
  Report Type: Spontaneous
  Country: US (occurrence: US)
  Receive Date: 20141112
  Receipt Date: 20141112
  Transmission Date: 20150529
  Serious: Yes (Hospitalization, Other)
  Sender: FDA-Public Use
  Company Number: US-GLAXOSMITHKLINE-US2014GSK019736

PATIENT
  Age: 57 Year
  Sex: Female

DRUGS (16)
  1. ZOLOFT [Concomitant]
     Active Substance: SERTRALINE HYDROCHLORIDE
  2. DIGITEK [Concomitant]
     Active Substance: DIGOXIN
  3. SPIRONOLACTONE. [Concomitant]
     Active Substance: SPIRONOLACTONE
  4. PROTONIX [Concomitant]
     Active Substance: PANTOPRAZOLE SODIUM
  5. KLONOPIN [Concomitant]
     Active Substance: CLONAZEPAM
  6. LEVOXYL [Concomitant]
     Active Substance: LEVOTHYROXINE SODIUM
  7. ANTIHISTAMINE [Concomitant]
     Active Substance: UNSPECIFIED INGREDIENT
  8. COREG CR [Suspect]
     Active Substance: CARVEDILOL PHOSPHATE
     Indication: CARDIOMYOPATHY
     Dosage: 20 MG, QD
     Dates: start: 2004
  9. TORSEMIDE. [Concomitant]
     Active Substance: TORSEMIDE
  10. COREG [Suspect]
     Active Substance: CARVEDILOL
     Indication: PRODUCT USED FOR UNKNOWN INDICATION
  11. SOTALOL. [Concomitant]
     Active Substance: SOTALOL
  12. ATIVAN [Concomitant]
     Active Substance: LORAZEPAM
  13. RAMIPRIL. [Concomitant]
     Active Substance: RAMIPRIL
  14. STEROID SHOT (NOS) [Concomitant]
  15. ZITHROMAX [Concomitant]
     Active Substance: AZITHROMYCIN DIHYDRATE
  16. PULMICORT (BUDESONID) [Concomitant]

REACTIONS (6)
  - Cough [Not Recovered/Not Resolved]
  - Arthroscopic surgery [Recovered/Resolved]
  - Hospitalisation [Unknown]
  - Pain [Unknown]
  - Upper respiratory tract infection [Not Recovered/Not Resolved]
  - Bronchitis [Not Recovered/Not Resolved]

NARRATIVE: CASE EVENT DATE: 2013
